FAERS Safety Report 6446877-X (Version None)
Quarter: 2009Q4

REPORT INFORMATION
  Report Type: 
  Country: None (occurrence: None)
  Receive Date: 20091119
  Receipt Date: 20091113
  Transmission Date: 20100525
  Serious: Yes (Hospitalization, Other)
  Sender: FDA-Public Use
  Company Number: US-BAYER-200833874NA

PATIENT
  Age: 10 Year
  Sex: Female

DRUGS (13)
  1. CAMPATH [Suspect]
     Indication: RENAL TRANSPLANT
     Dosage: UNIT DOSE: 9 MG
     Route: 042
     Dates: start: 20060213, end: 20060213
  2. CAMPATH [Suspect]
     Dosage: UNIT DOSE: 9 MG
     Route: 042
     Dates: start: 20060215, end: 20060215
  3. SODIUM BICARBONATE IN PLASTIC CONTAINER [Concomitant]
     Indication: METABOLIC ACIDOSIS
     Dosage: 3 INFUSIONS, THEN ADDED TO IV FLUIDS
     Route: 042
  4. SODIUM BICARBONATE IN PLASTIC CONTAINER [Concomitant]
     Route: 048
  5. TYLENOL (CAPLET) [Concomitant]
     Dates: start: 20060419
  6. BENADRYL [Concomitant]
     Dates: start: 20060425
  7. FLUCONAZOLE [Concomitant]
     Dates: start: 20060215
  8. MULTI-VITAMIN [Concomitant]
     Dates: start: 20060215
  9. POTASSIUM PHOSPHATES [Concomitant]
     Dates: start: 20060215
  10. MAGNESIUM OXIDE [Concomitant]
     Dates: start: 20060215
  11. PRILOSEC [Concomitant]
     Dates: start: 20060222
  12. PROGRAF [Concomitant]
     Dates: start: 20060215, end: 20060220
  13. EPOGEN [Concomitant]
     Dosage: THREE TIMES PRIOR TO DISCHARGE

REACTIONS (1)
  - TRANSPLANT REJECTION [None]
